FAERS Safety Report 14216184 (Version 2)
Quarter: 2018Q2

REPORT INFORMATION
  Report Type: Spontaneous
  Country: US (occurrence: US)
  Receive Date: 20171122
  Receipt Date: 20180514
  Transmission Date: 20180711
  Serious: No
  Sender: FDA-Public Use
  Company Number: US-SHIRE-US201727905

PATIENT
  Age: 66 Year
  Sex: Female

DRUGS (3)
  1. PILOCARPINE. [Concomitant]
     Active Substance: PILOCARPINE
     Indication: DRY MOUTH
  2. XIIDRA [Suspect]
     Active Substance: LIFITEGRAST
     Indication: SJOGREN^S SYNDROME
     Dosage: 1 GTT, 2X/DAY:BID
     Route: 047
     Dates: start: 2017, end: 2017
  3. XIIDRA [Suspect]
     Active Substance: LIFITEGRAST
     Dosage: 5% SOLUTION ONE DROP EACH EYE
     Route: 047
     Dates: start: 201707, end: 201709

REACTIONS (9)
  - Dysgeusia [Recovered/Resolved]
  - Instillation site pain [Unknown]
  - Instillation site discomfort [Unknown]
  - Ocular hyperaemia [Unknown]
  - Vision blurred [Unknown]
  - Instillation site reaction [Recovered/Resolved]
  - Headache [Unknown]
  - Instillation site pain [Recovered/Resolved]
  - Superficial injury of eye [Unknown]

NARRATIVE: CASE EVENT DATE: 2017
